FAERS Safety Report 8473725-9 (Version None)
Quarter: 2012Q2

REPORT INFORMATION
  Report Type: 
  Country: None (occurrence: None)
  Receive Date: 20120628
  Receipt Date: 20110928
  Transmission Date: 20120825
  Serious: No
  Sender: FDA-Public Use
  Company Number: US-MYLANLABS-2011S1020459

PATIENT
  Age: 34 Year
  Sex: Female

DRUGS (8)
  1. CLOZAPINE [Suspect]
     Indication: MOOD DISORDER DUE TO A GENERAL MEDICAL CONDITION
     Route: 048
  2. TOPAMAX [Concomitant]
     Indication: MIGRAINE
  3. LITHOBID [Concomitant]
  4. BUSPAR [Concomitant]
  5. CYMBALTA [Concomitant]
  6. HERBAL [Concomitant]
     Dosage: RESPITROL
  7. CLOZAPINE [Suspect]
     Route: 048
  8. TRAZODONE HCL [Concomitant]

REACTIONS (1)
  - FURUNCLE [None]
